FAERS Safety Report 4426098-2 (Version None)
Quarter: 2004Q3

REPORT INFORMATION
  Report Type: 
  Country: None (occurrence: None)
  Receive Date: 20040811
  Receipt Date: 20040730
  Transmission Date: 20050211
  Serious: Yes (Hospitalization, Other)
  Sender: FDA-Public Use
  Company Number: HQWYE181216JUL04

PATIENT
  Age: 24 Year
  Sex: Female

DRUGS (9)
  1. MINOCYCLINE HCL [Suspect]
     Indication: BRONCHITIS ACUTE
     Dosage: 100 MG INTRAVENOUS
     Route: 042
     Dates: start: 20010519, end: 20010519
  2. AZITHROMYCIN [Concomitant]
  3. BETAMETHASONE [Concomitant]
  4. COUGHCODE (BROMISOVAL/DIHYDROCODEINE PHOSPHATE/DIPROPHYLLINE/METHYLPHE [Concomitant]
  5. SUCRALFATE [Concomitant]
  6. DOMENAN (OZAGREL HYDROCHLORIDE) [Concomitant]
  7. HOKUNALIN (TULOBUTEROL HYDROCHLORIDE) [Concomitant]
  8. AMINOPHYLLIN [Concomitant]
  9. HUSTOSIL (GUAIFENESIN) [Concomitant]

REACTIONS (1)
  - STEVENS-JOHNSON SYNDROME [None]
